FAERS Safety Report 10536585 (Version 2)
Quarter: 2015Q4

REPORT INFORMATION
  Report Type: Spontaneous
  Country: US (occurrence: US)
  Receive Date: 20141022
  Receipt Date: 20151014
  Transmission Date: 20160304
  Serious: No
  Sender: FDA-Public Use
  Company Number: US-RECKITT BENCKISER PHARMACEUTICAL, INC-RB-67979-2014

PATIENT
  Age: 0 Year
  Sex: Male
  Weight: 3.2 kg

DRUGS (4)
  1. SUBOXONE [Suspect]
     Active Substance: BUPRENORPHINE HYDROCHLORIDE\NALOXONE HYDROCHLORIDE
     Dosage: SUBOXONE FILM; MOTHER WAS TAKING ONE 8 MG FILM AND TWO 2 MG FILMS
     Route: 063
     Dates: start: 201312, end: 201312
  2. BUPRENORPHINE GENERIC [Suspect]
     Active Substance: BUPRENORPHINE
     Dosage: MOTHER WAS TAKING ONE 8 MG TABLET AND TWO 2 MG TABLETS
     Route: 063
     Dates: start: 20131119, end: 201312
  3. SUBOXONE [Suspect]
     Active Substance: BUPRENORPHINE HYDROCHLORIDE\NALOXONE HYDROCHLORIDE
     Indication: DRUG DEPENDENCE
     Dosage: SUBOXONE FILM; MOTHER WAS TAKING ONE 8 MG FILM AND TWO 2 MG FILMS
     Route: 064
     Dates: start: 20130304, end: 201304
  4. BUPRENORPHINE GENERIC [Suspect]
     Active Substance: BUPRENORPHINE
     Indication: DRUG DEPENDENCE
     Dosage: MOTHER WAS TAKING ONE 8 MG TABLET AND TWO 2 MG TABLETS
     Route: 064
     Dates: start: 201304, end: 20131119

REACTIONS (3)
  - Foetal exposure during pregnancy [Recovered/Resolved]
  - Exposure during breast feeding [Recovered/Resolved]
  - Infantile spitting up [Recovered/Resolved]

NARRATIVE: CASE EVENT DATE: 20130304
